FAERS Safety Report 4850650-3 (Version None)
Quarter: 2005Q4

REPORT INFORMATION
  Report Type: 
  Country: None (occurrence: None)
  Receive Date: 20051212
  Receipt Date: 20041117
  Transmission Date: 20060501
  Serious: No
  Sender: FDA-Public Use
  Company Number: US-BRISTOL-MYERS SQUIBB COMPANY-12769246

PATIENT
  Age: 51 Year
  Sex: Female
  Weight: 56 kg

DRUGS (3)
  1. QUESTRAN [Suspect]
     Indication: BLOOD CHOLESTEROL INCREASED
     Route: 048
  2. QUESTRAN [Suspect]
     Indication: DIARRHOEA
     Route: 048
  3. MULTIVITAMIN [Concomitant]

REACTIONS (4)
  - ABDOMINAL DISTENSION [None]
  - ABDOMINAL PAIN UPPER [None]
  - DYSPEPSIA [None]
  - NAUSEA [None]
